FAERS Safety Report 7674368-7 (Version None)
Quarter: 2011Q3

REPORT INFORMATION
  Report Type: 
  Country: None (occurrence: None)
  Receive Date: 20110808
  Receipt Date: 20110727
  Transmission Date: 20111222
  Serious: Yes (Other)
  Sender: FDA-Public Use
  Company Number: 995835

PATIENT
  Age: 42 Year
  Sex: Male

DRUGS (6)
  1. MITOXANTRONE HYDROCHLORIDE [Suspect]
     Indication: CHROMOSOME ANALYSIS ABNORMAL
  2. MITOXANTRONE HYDROCHLORIDE [Suspect]
     Indication: B PRECURSOR TYPE ACUTE LEUKAEMIA
  3. IMATINIB MESYLATE [Suspect]
     Indication: B PRECURSOR TYPE ACUTE LEUKAEMIA
     Dosage: 400MG DAILY
  4. IMATINIB MESYLATE [Suspect]
     Indication: CHROMOSOME ANALYSIS ABNORMAL
     Dosage: 400MG DAILY
  5. CYTARABINE [Suspect]
     Indication: B PRECURSOR TYPE ACUTE LEUKAEMIA
  6. CYTARABINE [Suspect]
     Indication: CHROMOSOME ANALYSIS ABNORMAL

REACTIONS (7)
  - SUBDURAL HAEMATOMA [None]
  - SWELLING FACE [None]
  - MENTAL IMPAIRMENT [None]
  - BRAIN MIDLINE SHIFT [None]
  - THROMBOCYTOPENIA [None]
  - GAIT DISTURBANCE [None]
  - DYSURIA [None]
